FAERS Safety Report 12297948 (Version 2)
Quarter: 2016Q3

REPORT INFORMATION
  Report Type: Spontaneous
  Country: US (occurrence: US)
  Receive Date: 20160422
  Receipt Date: 20160801
  Transmission Date: 20161109
  Serious: No
  Sender: FDA-Public Use
  Company Number: US-PFIZER INC-2016197213

PATIENT
  Age: 39 Year
  Sex: Female
  Weight: 68 kg

DRUGS (2)
  1. ESTRING [Suspect]
     Active Substance: ESTRADIOL
     Indication: HORMONE REPLACEMENT THERAPY
     Dosage: 1 DF (RING), EVERY 3 MONTHS
     Route: 067
     Dates: start: 201601, end: 201602
  2. ESTRING [Suspect]
     Active Substance: ESTRADIOL
     Dosage: 1 DF (RING), EVERY 3 MONTHS
     Route: 067

REACTIONS (6)
  - Vaginal erosion [Recovered/Resolved]
  - Vaginal haemorrhage [Recovered/Resolved]
  - Product size issue [Unknown]
  - Vulvovaginal discomfort [Not Recovered/Not Resolved]
  - Product use issue [Unknown]
  - Wrong technique in product usage process [Not Recovered/Not Resolved]

NARRATIVE: CASE EVENT DATE: 201601
